FAERS Safety Report 6605167-2 (Version None)
Quarter: 2010Q1

REPORT INFORMATION
  Report Type: 
  Country: None (occurrence: None)
  Receive Date: 20100226
  Receipt Date: 20100217
  Transmission Date: 20100710
  Serious: Yes (Other)
  Sender: FDA-Public Use
  Company Number: GB-WATSON-2010-01577

PATIENT
  Age: 20 Year
  Sex: Female
  Weight: 92 kg

DRUGS (5)
  1. CITALOPRAM HYDROBROMIDE [Suspect]
     Indication: OBSESSIVE-COMPULSIVE DISORDER
     Dosage: 10 MG, DAILY
  2. CLOZARIL [Suspect]
     Indication: SCHIZOPHRENIA
     Dosage: 300 MG, DAILY
     Dates: start: 20090401
  3. CLOZARIL [Suspect]
     Dosage: 275 MG, DAILY
     Route: 048
     Dates: start: 20100115
  4. CLOZARIL [Suspect]
     Dosage: 200 MG, DAILY
     Route: 048
     Dates: start: 20090126
  5. CLOZARIL [Suspect]
     Dosage: 30 MG, DAILY
     Route: 048
     Dates: start: 20091230

REACTIONS (8)
  - ANTIPSYCHOTIC DRUG LEVEL INCREASED [None]
  - ANXIETY [None]
  - DRUG INEFFECTIVE [None]
  - DRUG INTERACTION [None]
  - HYPOCHONDRIASIS [None]
  - IMPULSIVE BEHAVIOUR [None]
  - OBSESSIVE-COMPULSIVE DISORDER [None]
  - REPETITIVE SPEECH [None]
